FAERS Safety Report 9019597 (Version 1)
Quarter: 2013Q1

REPORT INFORMATION
  Report Type: Spontaneous
  Country: US (occurrence: US)
  Receive Date: 20130118
  Receipt Date: 20130118
  Transmission Date: 20140127
  Serious: Yes (Death)
  Sender: FDA-Public Use
  Company Number: US-SHIONOGI, INC-2013000070

PATIENT
  Age: 41 Year
  Sex: Female

DRUGS (5)
  1. CLONIDINE [Suspect]
     Dosage: UNK
  2. VERAPAMIL [Suspect]
     Dosage: UNK
  3. BUTALBITAL, ACETAMINOPHEN + CAFFEINE [Suspect]
     Dosage: UNK
  4. CITALOPRAM [Suspect]
     Dosage: UNK
  5. ETHANOL [Suspect]
     Dosage: UNK

REACTIONS (1)
  - Completed suicide [Fatal]
